FAERS Safety Report 11069380 (Version 1)
Quarter: 2015Q2

REPORT INFORMATION
  Report Type: Spontaneous
  Country: IN (occurrence: IN)
  Receive Date: 20150427
  Receipt Date: 20150427
  Transmission Date: 20150821
  Serious: Yes (Hospitalization)
  Sender: FDA-Public Use
  Company Number: PHHY2015IN044754

PATIENT
  Age: 9 Year
  Sex: Male

DRUGS (1)
  1. HYDROCORTISONE. [Suspect]
     Active Substance: HYDROCORTISONE
     Indication: NEPHROTIC SYNDROME
     Dosage: 240 MG, QD
     Route: 065

REACTIONS (9)
  - Increased appetite [Recovered/Resolved]
  - Insomnia [Recovered/Resolved]
  - Hypomania [Recovered/Resolved]
  - Self esteem inflated [Recovered/Resolved]
  - Abnormal behaviour [Recovered/Resolved]
  - Restlessness [Recovered/Resolved]
  - Pressure of speech [Recovered/Resolved]
  - Disinhibition [Recovered/Resolved]
  - Irritability [Recovered/Resolved]
